FAERS Safety Report 8543169-X (Version None)
Quarter: 2012Q3

REPORT INFORMATION
  Report Type: 
  Country: None (occurrence: None)
  Receive Date: 20120716
  Receipt Date: 20120629
  Transmission Date: 20120928
  Serious: Yes (Hospitalization)
  Sender: FDA-Public Use
  Company Number: 2012S1004283

PATIENT
  Sex: Male

DRUGS (1)
  1. SOFLAX [Suspect]
     Indication: PRODUCT USED FOR UNKNOWN INDICATION
     Dosage: PO
     Route: 048

REACTIONS (2)
  - ANAL HAEMORRHAGE [None]
  - NO THERAPEUTIC RESPONSE [None]
